FAERS Safety Report 11005325 (Version 1)
Quarter: 2015Q2

REPORT INFORMATION
  Report Type: Spontaneous
  Country: BR (occurrence: BR)
  Receive Date: 20150409
  Receipt Date: 20150409
  Transmission Date: 20150821
  Serious: Yes (Other)
  Sender: FDA-Public Use
  Company Number: BR-BAYER-2015-098667

PATIENT
  Sex: Female

DRUGS (1)
  1. MIRENA [Suspect]
     Active Substance: LEVONORGESTREL
     Dosage: 20 MCG/24HR, CONT
     Route: 015
     Dates: start: 20150202

REACTIONS (3)
  - Urinary tract infection [Not Recovered/Not Resolved]
  - Vaginal infection [Not Recovered/Not Resolved]
  - Device allergy [Not Recovered/Not Resolved]
